FAERS Safety Report 8828275 (Version 2)
Quarter: 2012Q4

REPORT INFORMATION
  Report Type: 
  Country: ID (occurrence: ID)
  Receive Date: 20121008
  Receipt Date: 20121114
  Transmission Date: 20130627
  Serious: Yes (Death, Hospitalization, Other)
  Sender: FDA-Public Use
  Company Number: PHHY2012ID087623

PATIENT
  Age: 44 Year
  Sex: Male

DRUGS (4)
  1. GLIVEC [Suspect]
     Indication: CHRONIC MYELOID LEUKAEMIA
     Dosage: 200 mg, BID
     Route: 048
     Dates: start: 200707
  2. GLIVEC [Suspect]
     Dosage: 200 mg, BID
     Route: 048
     Dates: start: 201107, end: 20120718
  3. GRANULOCYTE COLONY STIMULATING FACTOR [Concomitant]
     Dosage: 300 ug, per day
     Route: 058
     Dates: start: 20120719, end: 20120725
  4. VITAMIN K [Concomitant]
     Dosage: 1 DF, UNK
     Route: 048
     Dates: start: 20120919, end: 20120921

REACTIONS (6)
  - Death [Fatal]
  - Haemoglobin decreased [Unknown]
  - Platelet count decreased [Unknown]
  - Differential white blood cell count abnormal [Unknown]
  - White blood cell count decreased [Unknown]
  - White blood cell count increased [Unknown]
